FAERS Safety Report 10567070 (Version 2)
Quarter: 2015Q1

REPORT INFORMATION
  Report Type: Report from Study
  Country: US (occurrence: US)
  Receive Date: 20141105
  Receipt Date: 20150102
  Transmission Date: 20150720
  Serious: Yes (Hospitalization)
  Sender: FDA-Public Use
  Company Number: US-009507513-1411USA001129

PATIENT
  Age: 54 Year
  Sex: Male

DRUGS (19)
  1. COLACE [Concomitant]
     Active Substance: DOCUSATE SODIUM
     Indication: CONSTIPATION
     Dosage: UNK, BID AS NEEDED, STRENGTH: 1 CAP, TOTALD AILY DOSE 2 CAPS
     Route: 048
     Dates: start: 20130928
  2. PEMBROLIZUMAB. [Suspect]
     Active Substance: PEMBROLIZUMAB
     Dosage: 2 MG/KG, Q3W
     Route: 042
     Dates: start: 20141205, end: 20141205
  3. IBUPROFEN. [Concomitant]
     Active Substance: IBUPROFEN
     Indication: PAIN
     Dosage: 3 TAB, QID, STRENGTH: 200 MG
     Route: 048
     Dates: start: 20140820
  4. COMPAZINE [Concomitant]
     Active Substance: PROCHLORPERAZINE MALEATE
     Indication: NAUSEA
     Dosage: UNK, Q6H AS NEEDED, STRENGTH: 10 MG, TOTAL DAILY DOSE 40 MG
     Route: 048
     Dates: start: 20130613
  5. MORPHINE IR [Concomitant]
     Active Substance: MORPHINE
     Indication: PAIN
     Dosage: UNK, Q4H AS NEEDED, STRENGTH: 15 MG, TOTAL DAILY DOSE 90 MG
     Route: 048
     Dates: start: 20140811
  6. TRAMADOL HYDROCHLORIDE. [Concomitant]
     Active Substance: TRAMADOL HYDROCHLORIDE
     Indication: PAIN
     Dosage: UNK, Q6H AS NEEDED, STRENGTH: 1 TAB, TOTAL DAILY DOSE 4 TAB
     Route: 048
     Dates: start: 20140709
  7. ZOFRAN [Concomitant]
     Active Substance: ONDANSETRON HYDROCHLORIDE
     Indication: VOMITING
  8. DIPHENHYDRAMINE HYDROCHLORIDE (+) HALOPERIDOL (+) LORAZEPAM [Concomitant]
     Indication: NAUSEA
     Dosage: UNK, Q8H AS NEEDED, STRENGTH: 1 TAB, TOTAL DAILY DOSE 3
     Route: 048
     Dates: start: 20140214
  9. IMODIUM [Concomitant]
     Active Substance: LOPERAMIDE HYDROCHLORIDE
     Indication: CONSTIPATION
     Dosage: UNK, Q6H AS NEEDED, STRENGTH: 4 MG, TOTAL DAILY DOSE: 16 MG
     Route: 048
     Dates: start: 20140613
  10. PEMBROLIZUMAB. [Suspect]
     Active Substance: PEMBROLIZUMAB
     Dosage: 2 MG/KG, Q3W
     Route: 042
     Dates: start: 20141024, end: 20141024
  11. BENADRYL [Concomitant]
     Active Substance: DIPHENHYDRAMINE HYDROCHLORIDE
     Indication: PRURITUS
     Dosage: UNK, Q6H AS NEEDED, STRENGTH: 25 MG, TOTAL DAILY DOSE 100 MG
     Route: 048
     Dates: start: 20130613
  12. COMPAZINE [Concomitant]
     Active Substance: PROCHLORPERAZINE MALEATE
     Indication: VOMITING
  13. NORCO [Concomitant]
     Active Substance: ACETAMINOPHEN\HYDROCODONE BITARTRATE
     Indication: PAIN
     Dosage: UNK, Q6H AS NEEDED, STRENGTH: 1-2 TAB, TOTAL DAILY DOSE 8 TAB
     Route: 048
     Dates: start: 20140927
  14. MS CONTIN [Concomitant]
     Active Substance: MORPHINE SULFATE
     Indication: PAIN
     Dosage: UNK, TID, STRENGTH: 15 MG, TOTAL DAILY DOSE 45 MG
     Route: 048
     Dates: start: 20140811
  15. NEURONTIN [Concomitant]
     Active Substance: GABAPENTIN
     Indication: NEURALGIA
     Dosage: UNK, TID, STRENGTH: 1 CAP, TOTAL DAILY DOSE 3 CAPS
     Route: 048
     Dates: start: 20141013
  16. ZOFRAN [Concomitant]
     Active Substance: ONDANSETRON HYDROCHLORIDE
     Indication: NAUSEA
     Dosage: 1 TABLET EVERY 8 HOURS AS NEEDED, STRENGTH: 8 MGTAB, TOTAL DAILY DOSE 3 TAB
     Route: 048
     Dates: start: 20140117
  17. DIPHENHYDRAMINE HYDROCHLORIDE (+) HALOPERIDOL (+) LORAZEPAM [Concomitant]
     Indication: VOMITING
  18. PEMBROLIZUMAB. [Suspect]
     Active Substance: PEMBROLIZUMAB
     Indication: METASTATIC MALIGNANT MELANOMA
     Dosage: 2 MG/KG, Q3W
     Route: 042
     Dates: start: 20140912, end: 20140912
  19. IBUPROFEN. [Concomitant]
     Active Substance: IBUPROFEN
     Indication: SWELLING

REACTIONS (5)
  - Metastases to lung [None]
  - Metastatic malignant melanoma [None]
  - Amnesia [None]
  - Headache [Recovering/Resolving]
  - Metastases to central nervous system [None]

NARRATIVE: CASE EVENT DATE: 20141026
